FAERS Safety Report 10300081 (Version 1)
Quarter: 2014Q3

REPORT INFORMATION
  Report Type: Spontaneous
  Country: CA (occurrence: CA)
  Receive Date: 20140711
  Receipt Date: 20140711
  Transmission Date: 20150326
  Serious: Yes (Death)
  Sender: FDA-Public Use
  Company Number: CA-B.I. PHARMACEUTICALS,INC./RIDGEFIELD-2014-BI-31920CN

PATIENT
  Sex: Female

DRUGS (2)
  1. PRADAXA [Suspect]
     Active Substance: DABIGATRAN ETEXILATE MESYLATE
     Indication: ATRIAL FIBRILLATION
     Route: 048
     Dates: start: 20130416
  2. PRADAXA [Suspect]
     Active Substance: DABIGATRAN ETEXILATE MESYLATE
     Indication: HIP ARTHROPLASTY

REACTIONS (6)
  - Economic problem [Unknown]
  - Pain [Unknown]
  - Uterine haemorrhage [Unknown]
  - Death [Fatal]
  - Haemorrhage [Unknown]
  - Emotional distress [Unknown]
